FAERS Safety Report 20153133 (Version 2)
Quarter: 2021Q4

REPORT INFORMATION
  Report Type: Spontaneous
  Country: TH (occurrence: TH)
  Receive Date: 20211206
  Receipt Date: 20211221
  Transmission Date: 20220303
  Serious: Yes (Other)
  Sender: FDA-Public Use
  Company Number: TH-SUNOVION-2021SUN004530

PATIENT
  Age: 20 Year
  Sex: Female

DRUGS (5)
  1. LURASIDONE HYDROCHLORIDE [Suspect]
     Active Substance: LURASIDONE HYDROCHLORIDE
     Dosage: UNK
     Route: 048
  2. VORTIOXETINE [Suspect]
     Active Substance: VORTIOXETINE
  3. LAMOTRIGINE [Suspect]
     Active Substance: LAMOTRIGINE
  4. BUPROPION [Suspect]
     Active Substance: BUPROPION
  5. ESCITALOPRAM [Suspect]
     Active Substance: ESCITALOPRAM OXALATE

REACTIONS (19)
  - Depressed level of consciousness [Recovered/Resolved]
  - Serotonin syndrome [Unknown]
  - Encephalopathy [Recovered/Resolved]
  - Loss of consciousness [Recovered/Resolved]
  - Urinary retention [Recovered/Resolved]
  - Anterograde amnesia [Unknown]
  - Hyperthermia [Recovered/Resolved]
  - Mydriasis [Recovered/Resolved]
  - Hyperreflexia [Recovered/Resolved]
  - Myoclonus [Recovered/Resolved]
  - Drug interaction [Unknown]
  - Retrograde amnesia [Unknown]
  - Flushing [Recovered/Resolved]
  - Clonus [Unknown]
  - Agitation [Unknown]
  - Tachycardia [Recovered/Resolved]
  - Somnolence [Unknown]
  - Hypertension [Recovered/Resolved]
  - Overdose [Unknown]
